FAERS Safety Report 19123208 (Version 2)
Quarter: 2021Q2

REPORT INFORMATION
  Report Type: Spontaneous
  Country: IT (occurrence: IT)
  Receive Date: 20210412
  Receipt Date: 20210518
  Transmission Date: 20210717
  Serious: Yes (Other)
  Sender: FDA-Public Use
  Company Number: IT-AMGEN-ITASP2021053241

PATIENT
  Age: 56 Year
  Sex: Female

DRUGS (23)
  1. FILGRASTIM [Suspect]
     Active Substance: FILGRASTIM
     Indication: PROPHYLAXIS
     Dosage: UNK
     Route: 065
  2. CYCLOPHOSPHAMIDE ANHYDROUS. [Concomitant]
     Active Substance: CYCLOPHOSPHAMIDE ANHYDROUS
     Dosage: IV ON DAYS ?3??+?1
     Route: 042
  3. PEG/L?ASPARAGINASE [Concomitant]
     Active Substance: PEGASPARGASE
     Dosage: DAY 10
     Route: 042
  4. CYTOSINE ARABINOSIDE [Concomitant]
     Active Substance: CYTARABINE
     Dosage: DAYS 1?4)
  5. DEXAMETHASONE. [Concomitant]
     Active Substance: DEXAMETHASONE
     Dosage: (BOTH AT DAYS 1, 2, 8, 9, 15, 16),
  6. VINCRISTINE [Concomitant]
     Active Substance: VINCRISTINE
     Dosage: DAYS 1, 8, 15, 22)
     Route: 042
  7. FLUDARABINE [Concomitant]
     Active Substance: FLUDARABINE PHOSPHATE
     Dosage: 75 MILLIGRAM, DAYS ?4 TO ?2
  8. BLINATUMOMAB [Suspect]
     Active Substance: BLINATUMOMAB
     Dosage: 28 MICROGRAM, ON DAYS 8 TO 28,
     Route: 042
  9. PREDNISONE. [Concomitant]
     Active Substance: PREDNISONE
     Dosage: 20 MILLIGRAM/SQ. METER, ?5??+?1
     Route: 048
  10. THIOTEPA. [Concomitant]
     Active Substance: THIOTEPA
     Dosage: 270 MILLIGRAM,  DAYS ?6 AND ?5
  11. BUSULFAN. [Concomitant]
     Active Substance: BUSULFAN
     Dosage: 150 MILLIGRAM, DAYS ?4 AND ?3
  12. DEXAMETHASONE. [Concomitant]
     Active Substance: DEXAMETHASONE
     Dosage: 4 MILLIGRAM
  13. VENETOCLAX. [Concomitant]
     Active Substance: VENETOCLAX
     Dosage: 400 MILLIGRAM, QD
  14. METHOTREXATE. [Concomitant]
     Active Substance: METHOTREXATE
     Dosage: 12.5 MILLIGRAM
  15. BLINATUMOMAB [Suspect]
     Active Substance: BLINATUMOMAB
     Indication: ACUTE BIPHENOTYPIC LEUKAEMIA
     Dosage: 9 MICROGRAM,  ON DAYS 1 TO 7
     Route: 042
  16. LENALIDOMIDE [Concomitant]
     Active Substance: LENALIDOMIDE
     Dosage: 5 MILLIGRAM
     Dates: start: 201610, end: 201810
  17. IDARUBICIN [Concomitant]
     Active Substance: IDARUBICIN
     Dosage: ON DAYS 1?2
     Route: 042
  18. G?CSF [Concomitant]
     Active Substance: GRANULOCYTE COLONY-STIMULATING FACTOR NOS
     Dosage: FROM DAY 5)
     Route: 058
  19. MITOXANTRONE [Concomitant]
     Active Substance: MITOXANTRONE HYDROCHLORIDE
     Dosage: 10 MILLIGRAM/SQ. METER, DAYS 2?5)
  20. CYTARABINE. [Concomitant]
     Active Substance: CYTARABINE
     Dosage: 50 MILLIGRAM
  21. CARFILZOMIB [Suspect]
     Active Substance: CARFILZOMIB
     Indication: PLASMA CELL MYELOMA
     Dosage: FOUR 28?DAY CYCLES
     Route: 065
  22. DEXAMETHASONE. [Concomitant]
     Active Substance: DEXAMETHASONE
     Dosage: 5 MILLIGRAM/SQ. METER, 1?5, 15?19
  23. LENALIDOMIDE [Concomitant]
     Active Substance: LENALIDOMIDE
     Dosage: 25 MILLIGRAM, (DAYS 1?21).

REACTIONS (6)
  - Acute biphenotypic leukaemia [Unknown]
  - Haemoglobin decreased [Unknown]
  - Off label use [Unknown]
  - Minimal residual disease [Unknown]
  - Platelet count decreased [Unknown]
  - White blood cell count decreased [Unknown]
